FAERS Safety Report 7238921-7 (Version None)
Quarter: 2011Q1

REPORT INFORMATION
  Report Type: 
  Country: None (occurrence: None)
  Receive Date: 20110121
  Receipt Date: 20110114
  Transmission Date: 20110831
  Serious: Yes (Hospitalization)
  Sender: FDA-Public Use
  Company Number: US-US-EMD SERONO, INC.-7036373

PATIENT
  Sex: Female
  Weight: 61 kg

DRUGS (4)
  1. UNSPECIFIED BLOOD PRESSURE MEDICATIONS [Concomitant]
     Indication: HYPERTENSION
  2. UNSPECIFIED HEART MEDICATION [Concomitant]
     Indication: PRINZMETAL ANGINA
  3. UNSPECIFIED HEART MEDICATION [Concomitant]
     Indication: MYOCARDIAL INFARCTION
  4. REBIF [Suspect]
     Indication: MULTIPLE SCLEROSIS
     Route: 058
     Dates: start: 20081003

REACTIONS (3)
  - GASTRIC INFECTION [None]
  - DYSPNOEA [None]
  - STOMATITIS [None]
